FAERS Safety Report 5599082-3 (Version None)
Quarter: 2008Q1

REPORT INFORMATION
  Report Type: 
  Country: None (occurrence: None)
  Receive Date: 20080122
  Receipt Date: 20080116
  Transmission Date: 20080703
  Serious: Yes (Hospitalization)
  Sender: FDA-Public Use
  Company Number: GB-BOEHRINGER INGELHEIM PHARMACEUTICALS, INC.-2007-DE-06499GD

PATIENT
  Age: 57 Year
  Sex: Male

DRUGS (9)
  1. TIOTROPIUM-BROMIDE [Suspect]
     Indication: CHRONIC OBSTRUCTIVE PULMONARY DISEASE
     Route: 055
     Dates: start: 20031209, end: 20040109
  2. ASPIRIN [Concomitant]
  3. CANDESARTAN [Concomitant]
  4. FUROSEMIDE [Concomitant]
  5. ATORVASTATIN [Concomitant]
  6. DILZEM XL [Concomitant]
  7. GAVISCON [Concomitant]
  8. FENOFIBRATE [Concomitant]
  9. QUININE SULFATE [Concomitant]

REACTIONS (1)
  - CHRONIC OBSTRUCTIVE PULMONARY DISEASE [None]
